FAERS Safety Report 7286816-5 (Version None)
Quarter: 2011Q1

REPORT INFORMATION
  Report Type: 
  Country: None (occurrence: None)
  Receive Date: 20110210
  Receipt Date: 20110207
  Transmission Date: 20110831
  Serious: Yes (Other)
  Sender: FDA-Public Use
  Company Number: DE-AMGEN-DEUSP2010008459

PATIENT
  Age: 71 Year
  Sex: Female

DRUGS (1)
  1. PROLIA [Suspect]
     Indication: OSTEOPOROSIS POSTMENOPAUSAL
     Dosage: UNK UNK, ONE TIME DOSE
     Route: 058
     Dates: start: 20101025

REACTIONS (5)
  - BRONCHIAL CARCINOMA [None]
  - PAIN OF SKIN [None]
  - PRURITUS [None]
  - UPPER RESPIRATORY TRACT INFECTION [None]
  - SKIN REACTION [None]
